FAERS Safety Report 13750920 (Version 1)
Quarter: 2017Q3

REPORT INFORMATION
  Report Type: Spontaneous
  Country: US (occurrence: US)
  Receive Date: 20170713
  Receipt Date: 20170713
  Transmission Date: 20171127
  Serious: Yes (Other)
  Sender: FDA-Public Use
  Company Number: PHEH2017US021222

PATIENT
  Sex: Male

DRUGS (1)
  1. OCTREOTIDE. [Suspect]
     Active Substance: OCTREOTIDE
     Indication: CARCINOID TUMOUR
     Dosage: UNK
     Route: 065

REACTIONS (5)
  - Concomitant disease aggravated [Recovering/Resolving]
  - Hot flush [Unknown]
  - Arthritis [Unknown]
  - Dyspepsia [Unknown]
  - Neoplasm progression [Recovering/Resolving]
